FAERS Safety Report 12775602 (Version 1)
Quarter: 2016Q3

REPORT INFORMATION
  Report Type: Spontaneous
  Country: DE (occurrence: DE)
  Receive Date: 20160923
  Receipt Date: 20160923
  Transmission Date: 20161109
  Serious: Yes (Hospitalization, Disabling)
  Sender: FDA-Public Use
  Company Number: DE-PFIZER INC-2016437057

PATIENT
  Sex: Male

DRUGS (7)
  1. VERAPAMIL [Concomitant]
     Active Substance: VERAPAMIL HYDROCHLORIDE
     Dosage: 80 MG, 3X/DAY
  2. METHOTREXATE. [Concomitant]
     Active Substance: METHOTREXATE
     Dosage: 10 MG, WEEKLY
  3. FOLSAEURE [Concomitant]
     Active Substance: FOLIC ACID
     Dosage: 1 DF, WEEKLY
  4. PREDNISOLONE. [Concomitant]
     Active Substance: PREDNISOLONE
     Dosage: 1 MG, 1X/DAY, 0-0-1
  5. DEKRISTOL [Concomitant]
     Active Substance: CHOLECALCIFEROL
     Dosage: 2000 IU, EVERY OTHER WEEK
  6. ASPIRIN. [Concomitant]
     Active Substance: ASPIRIN
     Dosage: 100 MG, 1X/DAY, 1-0-0
  7. ATORVASTATIN CALCIUM. [Suspect]
     Active Substance: ATORVASTATIN CALCIUM
     Indication: TYPE IIA HYPERLIPIDAEMIA
     Dosage: 10 MG, DAILY

REACTIONS (6)
  - Neuropathy peripheral [Unknown]
  - Impaired healing [Unknown]
  - Tendon pain [Unknown]
  - Wound [Unknown]
  - Tendon rupture [Unknown]
  - Tendonitis [Unknown]

NARRATIVE: CASE EVENT DATE: 201506
